FAERS Safety Report 16414507 (Version 14)
Quarter: 2019Q4

REPORT INFORMATION
  Report Type: Report from Study
  Country: DE (occurrence: DE)
  Receive Date: 20190611
  Receipt Date: 20191224
  Transmission Date: 20200122
  Serious: Yes (Other)
  Sender: FDA-Public Use
  Company Number: DE-KYOWAKIRIN-2019BKK008908

PATIENT

DRUGS (8)
  1. BUROSUMAB [Suspect]
     Active Substance: BUROSUMAB
     Dosage: 50 MG
     Route: 058
     Dates: start: 20190909, end: 20191104
  2. BUROSUMAB [Suspect]
     Active Substance: BUROSUMAB
     Dosage: 50 MG
     Route: 058
     Dates: start: 20191206
  3. BUROSUMAB [Suspect]
     Active Substance: BUROSUMAB
     Dosage: 50 MG
     Route: 058
     Dates: start: 20191206
  4. BUROSUMAB [Suspect]
     Active Substance: BUROSUMAB
     Dosage: 40 MG
     Route: 058
     Dates: start: 20190603, end: 20190827
  5. BUROSUMAB [Suspect]
     Active Substance: BUROSUMAB
     Dosage: 50 MG
     Route: 058
     Dates: start: 20191118, end: 20191118
  6. IBUPROFEN. [Concomitant]
     Active Substance: IBUPROFEN
     Indication: PRODUCT USED FOR UNKNOWN INDICATION
     Dosage: AS NECESSARY
     Route: 048
     Dates: start: 20191124
  7. BUROSUMAB [Suspect]
     Active Substance: BUROSUMAB
     Indication: HEREDITARY HYPOPHOSPHATAEMIC RICKETS
     Dosage: 25 MG
     Route: 058
     Dates: start: 20180910
  8. BUROSUMAB [Suspect]
     Active Substance: BUROSUMAB
     Dosage: 50 MG
     Route: 058
     Dates: start: 20190909, end: 20191104

REACTIONS (2)
  - Arthralgia [Recovered/Resolved]
  - Walking aid user [Recovered/Resolved]

NARRATIVE: CASE EVENT DATE: 2019
